FAERS Safety Report 15267981 (Version 1)
Quarter: 2018Q3

REPORT INFORMATION
  Report Type: Spontaneous
  Country: US (occurrence: US)
  Receive Date: 20180725
  Receipt Date: 20180725
  Transmission Date: 20181010
  Serious: Yes (Congenital Anomaly)
  Sender: FDA-Public Use
  Company Number: None

PATIENT
  Age: 40 Year
  Sex: Male
  Weight: 67 kg

DRUGS (1)
  1. IMATINIB [Suspect]
     Active Substance: IMATINIB
     Indication: GASTROINTESTINAL STROMAL TUMOUR
     Dates: start: 20160919, end: 20180725

REACTIONS (3)
  - Pregnancy [None]
  - Treatment noncompliance [None]
  - Exposure during pregnancy [None]

NARRATIVE: CASE EVENT DATE: 20180725
